FAERS Safety Report 16453466 (Version 1)
Quarter: 2019Q2

REPORT INFORMATION
  Report Type: Report from Study
  Country: FR (occurrence: FR)
  Receive Date: 20190619
  Receipt Date: 20190619
  Transmission Date: 20190711
  Serious: Yes (Hospitalization)
  Sender: FDA-Public Use
  Company Number: FR-SA-2016SA091680

PATIENT
  Age: 50 Year
  Sex: Female
  Weight: 60 kg

DRUGS (12)
  1. FOLINIC ACID [Suspect]
     Active Substance: LEUCOVORIN
     Dosage: 328 MG, QCY
     Route: 042
     Dates: start: 20160121, end: 20160121
  2. AFLIBERCEPT [Suspect]
     Active Substance: AFLIBERCEPT
     Dosage: 248 UNK, QCY
     Route: 042
     Dates: start: 20160121, end: 20160121
  3. IRINOTECAN [Suspect]
     Active Substance: IRINOTECAN
     Dosage: 300 MG, QCY
     Route: 042
     Dates: start: 20160121, end: 20160121
  4. FOLINIC ACID [Suspect]
     Active Substance: LEUCOVORIN
     Indication: COLORECTAL CANCER METASTATIC
     Dosage: 328 MG, QCY
     Route: 042
     Dates: start: 20160407, end: 20160407
  5. FLUOROURACIL. [Suspect]
     Active Substance: FLUOROURACIL
     Dosage: 3950 MG, QCY
     Route: 042
     Dates: start: 20160407, end: 20160407
  6. FLUOROURACIL. [Suspect]
     Active Substance: FLUOROURACIL
     Dosage: 650 MG, QCY
     Route: 040
     Dates: start: 20160121, end: 20160121
  7. FLUOROURACIL. [Suspect]
     Active Substance: FLUOROURACIL
     Indication: COLORECTAL CANCER METASTATIC
     Dosage: 3950 MG, QCY
     Route: 042
     Dates: start: 20160121, end: 20160121
  8. AFLIBERCEPT [Suspect]
     Active Substance: AFLIBERCEPT
     Indication: PRODUCT USED FOR UNKNOWN INDICATION
     Dosage: 248 MG, QCY
     Route: 042
     Dates: start: 20160407, end: 20160407
  9. IRINOTECAN [Suspect]
     Active Substance: IRINOTECAN
     Indication: COLORECTAL CANCER METASTATIC
     Dosage: 300 MG, QCY
     Route: 042
     Dates: start: 20160407, end: 20160407
  10. INDAPAMIDE;PERINDOPRIL ARGININE [Concomitant]
     Active Substance: INDAPAMIDE\PERINDOPRIL ARGININE
     Indication: HYPERTENSION
     Dosage: 2.5 MG,UNK
     Dates: start: 20160301
  11. FLUOROURACIL. [Suspect]
     Active Substance: FLUOROURACIL
     Dosage: 650 MG, QCY
     Route: 040
     Dates: start: 20160324, end: 20160324
  12. TEMERIT [Concomitant]
     Active Substance: NEBIVOLOL
     Indication: HYPERTENSION
     Dosage: 5 MG,UNK
     Dates: start: 20160204

REACTIONS (2)
  - Phlebitis [Unknown]
  - Pulmonary embolism [Unknown]

NARRATIVE: CASE EVENT DATE: 20160418
